FAERS Safety Report 13946198 (Version 3)
Quarter: 2018Q1

REPORT INFORMATION
  Report Type: Report from Study
  Country: BR (occurrence: BR)
  Receive Date: 20170907
  Receipt Date: 20180131
  Transmission Date: 20180508
  Serious: Yes (Death, Hospitalization)
  Sender: FDA-Public Use
  Company Number: BR-B.I. PHARMACEUTICALS,INC./RIDGEFIELD-2017-BI-042203

PATIENT
  Age: 72 Year
  Sex: Female
  Weight: 67 kg

DRUGS (4)
  1. ATORVASTATINA [Concomitant]
     Active Substance: ATORVASTATIN
     Indication: BLOOD CHOLESTEROL INCREASED
     Route: 048
     Dates: start: 2010
  2. OFEV [Suspect]
     Active Substance: NINTEDANIB
     Indication: IDIOPATHIC PULMONARY FIBROSIS
     Route: 048
     Dates: start: 20170525
  3. GLIFAGE [Concomitant]
     Active Substance: METFORMIN HYDROCHLORIDE
     Indication: DIABETES MELLITUS
     Route: 048
     Dates: start: 201612
  4. DIOVAN AMLO [Concomitant]
     Active Substance: AMLODIPINE\VALSARTAN
     Indication: HYPERTENSION
     Route: 048
     Dates: start: 2008

REACTIONS (10)
  - Chest discomfort [Unknown]
  - Heart rate increased [Unknown]
  - Cardiac disorder [Unknown]
  - Vomiting [Unknown]
  - Respiratory tract infection [Recovered/Resolved]
  - Hepatic steatosis [Recovered/Resolved]
  - Hepatic function abnormal [Recovered/Resolved]
  - Hepatic function abnormal [Recovered/Resolved]
  - Arrhythmia [Fatal]
  - Transaminases abnormal [Recovered/Resolved]

NARRATIVE: CASE EVENT DATE: 201705
